FAERS Safety Report 22022836 (Version 1)
Quarter: 2023Q1

REPORT INFORMATION
  Report Type: Spontaneous
  Country: FR (occurrence: FR)
  Receive Date: 20230222
  Receipt Date: 20230222
  Transmission Date: 20230418
  Serious: Yes (Death, Other)
  Sender: FDA-Public Use
  Company Number: None

PATIENT
  Age: 0 Day
  Sex: Male

DRUGS (1)
  1. IMATINIB MESYLATE [Suspect]
     Active Substance: IMATINIB MESYLATE
     Indication: Dermatofibrosarcoma protuberans
     Route: 064
     Dates: start: 20200216, end: 20200528

REACTIONS (2)
  - Foetal death [Fatal]
  - Cleft lip and palate [Not Recovered/Not Resolved]

NARRATIVE: CASE EVENT DATE: 20200528
